FAERS Safety Report 7492305-5 (Version None)
Quarter: 2011Q2

REPORT INFORMATION
  Report Type: 
  Country: None (occurrence: None)
  Receive Date: 20110519
  Receipt Date: 20100510
  Transmission Date: 20111010
  Serious: No
  Sender: FDA-Public Use
  Company Number: US-NOVEN-ALL1-2010-02759

PATIENT

DRUGS (3)
  1. DAYTRANA [Suspect]
     Dosage: 20 MG, 1X/DAY:QD (TWO 10-MG. PATCHES)
     Route: 062
     Dates: start: 20100501, end: 20100501
  2. DAYTRANA [Suspect]
     Dosage: 10 MG, 1X/DAY:QD
     Route: 062
     Dates: start: 20100501
  3. DAYTRANA [Suspect]
     Dosage: 10 MG, 1X/DAY:QD
     Route: 062
     Dates: start: 20100301, end: 20100501

REACTIONS (6)
  - TIC [None]
  - MUSCULOSKELETAL CHEST PAIN [None]
  - MOOD SWINGS [None]
  - EMOTIONAL DISTRESS [None]
  - DRUG DOSE OMISSION [None]
  - MALAISE [None]
